FAERS Safety Report 12576524 (Version 1)
Quarter: 2016Q3

REPORT INFORMATION
  Report Type: Spontaneous
  Country: AU (occurrence: AU)
  Receive Date: 20160720
  Receipt Date: 20160720
  Transmission Date: 20161109
  Serious: Yes (Death)
  Sender: FDA-Public Use
  Company Number: AU-MYLANLABS-2016M1029878

PATIENT

DRUGS (1)
  1. CLOZAPINE. [Suspect]
     Active Substance: CLOZAPINE
     Indication: SCHIZOPHRENIA
     Route: 065

REACTIONS (1)
  - Burkitt^s lymphoma [Fatal]
